FAERS Safety Report 7681422-2 (Version None)
Quarter: 2011Q3

REPORT INFORMATION
  Report Type: 
  Country: None (occurrence: None)
  Receive Date: 20110812
  Receipt Date: 20110808
  Transmission Date: 20111222
  Serious: Yes (Death)
  Sender: FDA-Public Use
  Company Number: US-CELGENEUS-163-21880-11061292

PATIENT
  Sex: Female

DRUGS (12)
  1. ZOVIRAX [Concomitant]
     Route: 065
  2. REVLIMID [Suspect]
     Indication: MULTIPLE MYELOMA
     Dosage: 25 MILLIGRAM
     Route: 048
     Dates: start: 20110515, end: 20110101
  3. COLACE [Concomitant]
     Route: 065
  4. KLOR-CON [Concomitant]
     Route: 065
  5. SEPTRA [Concomitant]
     Route: 065
  6. GABAPENTIN [Concomitant]
     Route: 065
  7. CYMBALTA [Concomitant]
     Route: 065
  8. OXYCONTIN [Concomitant]
     Route: 065
  9. REMERON [Concomitant]
     Route: 065
  10. DECADRON [Concomitant]
     Route: 065
  11. PERCOCET [Concomitant]
     Route: 065
  12. XANAX [Concomitant]
     Route: 065

REACTIONS (1)
  - MULTIPLE MYELOMA [None]
